FAERS Safety Report 25441750 (Version 1)
Quarter: 2025Q2

REPORT INFORMATION
  Report Type: Spontaneous
  Country: FR (occurrence: FR)
  Receive Date: 20250616
  Receipt Date: 20250616
  Transmission Date: 20250717
  Serious: Yes (Life-Threatening, Hospitalization)
  Sender: SK LIFE SCIENCE
  Company Number: FR-ACRAF-2025-038005

PATIENT

DRUGS (5)
  1. XCOPRI [Suspect]
     Active Substance: CENOBAMATE
     Indication: Epilepsy
     Dosage: 100 MILLIGRAM
     Route: 048
     Dates: start: 202311
  2. KEPPRA [Concomitant]
     Active Substance: LEVETIRACETAM
     Indication: Epilepsy
     Dosage: 1250 MG ORALLY IN THE MORNING AND EVENING
     Route: 048
     Dates: start: 2021
  3. TEGRETOL [Concomitant]
     Active Substance: CARBAMAZEPINE
     Indication: Epilepsy
     Dosage: EXTENDED RELEASE 400 MG ORALLY IN THE MORNING AND EVENING
     Route: 065
     Dates: start: 2021
  4. CLOBAZAM [Concomitant]
     Active Substance: CLOBAZAM
     Indication: Epilepsy
     Dosage: 10 MG ORALLY IN THE MORNING AND EVENING
     Route: 065
     Dates: start: 2021
  5. PROPRANOLOL [Concomitant]
     Active Substance: PROPRANOLOL HYDROCHLORIDE
     Indication: Migraine
     Dosage: 40 MG IN THE MORNING AND EVENING
     Route: 065

REACTIONS (4)
  - Intentional overdose [Unknown]
  - Underdose [Unknown]
  - Off label use [Unknown]
  - Suicide attempt [Recovered/Resolved]
